FAERS Safety Report 17290051 (Version 2)
Quarter: 2020Q1

REPORT INFORMATION
  Report Type: Spontaneous
  Country: PT (occurrence: PT)
  Receive Date: 20200120
  Receipt Date: 20200310
  Transmission Date: 20200409
  Serious: Yes (Other)
  Sender: FDA-Public Use
  Company Number: PT-009507513-2001PRT004765

PATIENT
  Sex: Male
  Weight: 60 kg

DRUGS (1)
  1. PROPECIA [Suspect]
     Active Substance: FINASTERIDE
     Indication: ALOPECIA
     Dosage: 0.5MG EVERY 3 DAYS
     Route: 048
     Dates: start: 20101206, end: 20191206

REACTIONS (2)
  - Erectile dysfunction [Recovered/Resolved]
  - Dry skin [Recovered/Resolved]

NARRATIVE: CASE EVENT DATE: 201012
